FAERS Safety Report 23733117 (Version 1)
Quarter: 2024Q2

REPORT INFORMATION
  Report Type: Spontaneous
  Country: US (occurrence: US)
  Receive Date: 20240411
  Receipt Date: 20240411
  Transmission Date: 20240716
  Serious: No
  Sender: FDA-Public Use
  Company Number: US-PFIZER INC-PV202400046535

PATIENT
  Age: 74 Year
  Sex: Female

DRUGS (1)
  1. BENZONATATE [Suspect]
     Active Substance: BENZONATATE

REACTIONS (3)
  - Asthma [Unknown]
  - Dyspnoea [Unknown]
  - Cough [Unknown]
